FAERS Safety Report 16356601 (Version 2)
Quarter: 2019Q2

REPORT INFORMATION
  Report Type: Report from Study
  Country: IE (occurrence: IE)
  Receive Date: 20190527
  Receipt Date: 20190604
  Transmission Date: 20190711
  Serious: Yes (Hospitalization)
  Sender: FDA-Public Use
  Company Number: IE-ROCHE-2322691

PATIENT
  Age: 67 Year
  Sex: Female
  Weight: 75 kg

DRUGS (5)
  1. CYCLOPHOSPHAMIDE. [Suspect]
     Active Substance: CYCLOPHOSPHAMIDE
     Indication: TRIPLE NEGATIVE BREAST CANCER
     Dosage: MOST RECENT DOSE OF CYCLOPHOSPHAMIDE PRIOR TO AE ONSET ON 03/MAY/2019- 1108 MG
     Route: 042
     Dates: start: 20190503
  2. PEGFILGRASTIM [Suspect]
     Active Substance: PEGFILGRASTIM
     Indication: TRIPLE NEGATIVE BREAST CANCER
     Dosage: AT 13.24, INJECTION SOLUTION CONCENTRATE WAS ADMINISTERED
     Route: 058
     Dates: start: 20190503, end: 20190503
  3. DOXORUBICIN [Suspect]
     Active Substance: DOXORUBICIN
     Indication: TRIPLE NEGATIVE BREAST CANCER
     Dosage: FOR A TOTAL OF 4 DOSES?MOST RECENT DOSE OF DOXORUBICIN ADMINISTERED PRIOR TO AE ONSET ON 03/MAY/2019
     Route: 042
     Dates: start: 20190503
  4. PACLITAXEL. [Suspect]
     Active Substance: PACLITAXEL
     Indication: TRIPLE NEGATIVE BREAST CANCER
     Dosage: MOST RECENT DOSE OF PACLITAXEL PRIOR TO AE ONSET ON 26/APR/2019- 149 MG
     Route: 042
     Dates: start: 20190208
  5. ATEZOLIZUMAB. [Suspect]
     Active Substance: ATEZOLIZUMAB
     Indication: TRIPLE NEGATIVE BREAST CANCER
     Dosage: FOR 10 DOSES?MOST RECENT DOSE OF ATEZOLIZUMAB PRIOR TO AE ONSET ON 03/MAY/2019- 840 MG
     Route: 042
     Dates: start: 20190208

REACTIONS (1)
  - Acute kidney injury [Recovering/Resolving]

NARRATIVE: CASE EVENT DATE: 20190519
